FAERS Safety Report 9200264 (Version 2)
Quarter: 2013Q2

REPORT INFORMATION
  Report Type: Spontaneous
  Country: AU (occurrence: AU)
  Receive Date: 20130329
  Receipt Date: 20130610
  Transmission Date: 20140414
  Serious: Yes (Hospitalization, Other)
  Sender: FDA-Public Use
  Company Number: AU-009507513-1303AUS000067

PATIENT
  Sex: Male
  Weight: 115 kg

DRUGS (4)
  1. VICTRELIS 200 MG [Suspect]
     Dosage: 800 MG, TID
     Route: 048
     Dates: start: 20120611, end: 20130213
  2. PEGATRON [Suspect]
     Indication: HEPATITIS C
     Dosage: 150 MICROGRAM, QW
     Route: 058
     Dates: start: 20120528, end: 20130213
  3. PEGATRON [Suspect]
     Indication: LIVER DISORDER
  4. RITALIN [Concomitant]
     Indication: ATTENTION DEFICIT/HYPERACTIVITY DISORDER
     Dosage: UNK
     Route: 048

REACTIONS (4)
  - Pancytopenia [Unknown]
  - Oedema peripheral [Unknown]
  - Chest pain [Unknown]
  - Abdominal discomfort [Unknown]
